FAERS Safety Report 8502169-6 (Version None)
Quarter: 2012Q3

REPORT INFORMATION
  Report Type: 
  Country: None (occurrence: None)
  Receive Date: 20120711
  Receipt Date: 20120629
  Transmission Date: 20120928
  Serious: Yes (Hospitalization)
  Sender: FDA-Public Use
  Company Number: CA-JNJFOC-20120701179

PATIENT
  Sex: Male
  Weight: 95 kg

DRUGS (10)
  1. REMICADE [Suspect]
     Dosage: 3RD INFUSION
     Route: 042
     Dates: start: 20120619
  2. REMICADE [Suspect]
     Indication: PSORIATIC ARTHROPATHY
     Route: 042
  3. REMICADE [Suspect]
     Dosage: 3RD INFUSION
     Route: 042
     Dates: start: 20120619
  4. SYNTHROID [Concomitant]
     Route: 065
  5. PANTOPRAZOLE SODIUM [Concomitant]
     Route: 065
  6. FOLIC ACID [Concomitant]
     Route: 065
  7. REMICADE [Suspect]
     Route: 042
     Dates: start: 20120509
  8. REMICADE [Suspect]
     Indication: PSORIASIS
     Route: 042
  9. GLYBURIDE [Concomitant]
     Route: 065
  10. REMICADE [Suspect]
     Route: 042
     Dates: start: 20120509

REACTIONS (1)
  - PNEUMONIA [None]
